FAERS Safety Report 12536730 (Version 4)
Quarter: 2016Q3

REPORT INFORMATION
  Report Type: Spontaneous
  Country: US (occurrence: US)
  Receive Date: 20160707
  Receipt Date: 20160907
  Transmission Date: 20161109
  Serious: Yes (Other)
  Sender: FDA-Public Use
  Company Number: PHHY2016US091813

PATIENT
  Sex: Female
  Weight: 53.61 kg

DRUGS (3)
  1. ZOFRAN [Suspect]
     Active Substance: ONDANSETRON HYDROCHLORIDE
     Indication: VOMITING IN PREGNANCY
     Dosage: 4 MG
     Route: 042
     Dates: start: 20051208, end: 20051208
  2. ZOFRAN [Suspect]
     Active Substance: ONDANSETRON HYDROCHLORIDE
     Indication: VOMITING IN PREGNANCY
     Dosage: UNK
     Route: 065
  3. PENTASA [Concomitant]
     Active Substance: MESALAMINE
     Indication: CROHN^S DISEASE
     Route: 065

REACTIONS (12)
  - Gestational diabetes [Unknown]
  - Maternal exposure during pregnancy [Unknown]
  - Emotional distress [Unknown]
  - Muscle contractions involuntary [Unknown]
  - Abdominal pain upper [Unknown]
  - Pyrexia [Unknown]
  - Blindness [Unknown]
  - Pruritus [Unknown]
  - Product use issue [Unknown]
  - Choking [Unknown]
  - Back pain [Unknown]
  - Sensory loss [Unknown]
